FAERS Safety Report 6279514-8 (Version None)
Quarter: 2009Q3

REPORT INFORMATION
  Report Type: 
  Country: None (occurrence: None)
  Receive Date: 20090723
  Receipt Date: 20070711
  Transmission Date: 20100115
  Serious: Yes (Other)
  Sender: FDA-Public Use
  Company Number: US-ASTRAZENECA-2006UW24069

PATIENT
  Age: 17650 Day
  Sex: Female
  Weight: 92.1 kg

DRUGS (44)
  1. SEROQUEL [Suspect]
     Indication: AGITATION
     Route: 048
  2. SEROQUEL [Suspect]
     Indication: ANXIETY
     Route: 048
  3. SEROQUEL [Suspect]
     Indication: PANIC ATTACK
     Route: 048
  4. SEROQUEL [Suspect]
     Indication: DELUSION
     Route: 048
  5. SEROQUEL [Suspect]
     Indication: HALLUCINATION
     Route: 048
  6. SEROQUEL [Suspect]
     Dosage: 100 MG TO 1500 MG
     Route: 048
     Dates: start: 20030521
  7. SEROQUEL [Suspect]
     Dosage: 100 MG TO 1500 MG
     Route: 048
     Dates: start: 20030521
  8. SEROQUEL [Suspect]
     Dosage: 100 MG TO 1500 MG
     Route: 048
     Dates: start: 20030521
  9. SEROQUEL [Suspect]
     Dosage: 100 MG TO 1500 MG
     Route: 048
     Dates: start: 20030521
  10. SEROQUEL [Suspect]
     Dosage: 100 MG TO 1500 MG
     Route: 048
     Dates: start: 20030521
  11. ZYPREXA [Suspect]
     Route: 048
     Dates: start: 20021223, end: 20030521
  12. ABILIFY [Concomitant]
  13. HALDOL [Concomitant]
  14. NAVANE [Concomitant]
  15. RISPERDAL [Concomitant]
  16. THORAZINE [Concomitant]
  17. TRILAFON [Concomitant]
  18. PROTONIX [Concomitant]
     Dosage: 40 MG TO 80 MG
     Dates: start: 20030730
  19. LEVOTHYROXINE SODIUM [Concomitant]
     Indication: HYPOTHYROIDISM
     Dosage: 125 MCG TO 200 MCG
     Route: 048
     Dates: start: 20030730
  20. BUSPIRONE HCL [Concomitant]
     Dates: start: 20061023
  21. POTASSIUM GLUCONATE [Concomitant]
     Dates: start: 20061023
  22. ASPIRIN [Concomitant]
     Dates: start: 20061023
  23. ADDERALL 10 [Concomitant]
     Dates: start: 20030730
  24. CYTOMEL [Concomitant]
     Dosage: 5 MCG TO 10 MCG
     Dates: start: 20030730
  25. CLONAZEPAM [Concomitant]
     Dosage: 1 MG TO 4 MG
     Route: 048
     Dates: start: 20030730
  26. CELEBREX [Concomitant]
     Dates: start: 20030730
  27. ZYRTEC [Concomitant]
     Dates: start: 20030730
  28. CARDIZEM [Concomitant]
     Indication: HYPERTENSION
     Dosage: 120 MG TO 240 MG
     Dates: start: 20030730
  29. COZAAR [Concomitant]
     Dates: start: 20030730
  30. SINGULAIR [Concomitant]
     Dates: start: 20030730
  31. EFFEXOR XR [Concomitant]
     Dates: start: 20030730
  32. AMBIEN [Concomitant]
     Dosage: 10 MG TO 15 MG
     Dates: start: 20030730
  33. DEPAKOTE [Concomitant]
     Indication: AFFECTIVE DISORDER
     Dosage: 500 MG TO 1500 MG
     Dates: start: 20060112
  34. CHLORPROPAMIDE [Concomitant]
     Dates: start: 20060112
  35. BROMOCRIPTINE [Concomitant]
     Dosage: 2.5 MG TO 5 MG
     Dates: start: 20030730
  36. LISINOPRIL [Concomitant]
     Indication: HYPERTENSION
     Dates: start: 20050316
  37. GLYBURIDE [Concomitant]
     Dates: start: 20050316
  38. PREDNISONE TAB [Concomitant]
     Dosage: 20 MG TO 60 MG
     Dates: start: 20050316
  39. TRILEPTAL [Concomitant]
     Indication: CONVULSION
     Dates: start: 20061023
  40. TRICOR [Concomitant]
     Indication: HYPERLIPIDAEMIA
     Dates: start: 20070417
  41. ATIVAN [Concomitant]
     Indication: AGITATION
     Dates: start: 20060112
  42. ATIVAN [Concomitant]
     Indication: AGGRESSION
     Dates: start: 20060112
  43. LAMICTAL [Concomitant]
     Dosage: 100 MG TO 300 MG
     Dates: start: 20030730
  44. LITHOBID [Concomitant]
     Dates: start: 20061023

REACTIONS (4)
  - DIABETES MELLITUS [None]
  - DIABETES MELLITUS INADEQUATE CONTROL [None]
  - DIABETIC NEUROPATHY [None]
  - TYPE 2 DIABETES MELLITUS [None]
